FAERS Safety Report 21674120 (Version 1)
Quarter: 2022Q4

REPORT INFORMATION
  Report Type: Spontaneous
  Country: US (occurrence: US)
  Receive Date: 20221202
  Receipt Date: 20221202
  Transmission Date: 20230113
  Serious: No
  Sender: FDA-Public Use
  Company Number: US-PFIZER INC-202201342107

PATIENT
  Age: 73 Year
  Sex: Male
  Weight: 111.58 kg

DRUGS (3)
  1. VFEND [Suspect]
     Active Substance: VORICONAZOLE
     Indication: Fungal infection
     Dosage: 250 MG, 2X/DAY (ONE OF THE 200MG AND ONE OF THE 50MG EVERY 12 HOURS BY MOUTH)
     Route: 048
     Dates: start: 20220831, end: 202210
  2. VFEND [Suspect]
     Active Substance: VORICONAZOLE
     Indication: Pneumonia
  3. ETHAMBUTOL [Concomitant]
     Active Substance: ETHAMBUTOL HYDROCHLORIDE
     Indication: Bacterial infection
     Dosage: UNK

REACTIONS (1)
  - Hypoacusis [Unknown]

NARRATIVE: CASE EVENT DATE: 20221001
